FAERS Safety Report 19177072 (Version 1)
Quarter: 2021Q2

REPORT INFORMATION
  Report Type: Spontaneous
  Country: US (occurrence: US)
  Receive Date: 20210424
  Receipt Date: 20210424
  Transmission Date: 20210717
  Serious: Yes (Hospitalization, Other)
  Sender: FDA-Public Use
  Company Number: NVSC2021US090947

PATIENT
  Age: 21 Month
  Sex: Male

DRUGS (2)
  1. CARBOPLATIN. [Suspect]
     Active Substance: CARBOPLATIN
     Indication: OPTIC GLIOMA
     Dosage: 175 MG/M2, CYCLIC
     Route: 065
  2. VINCRISTINE [Suspect]
     Active Substance: VINCRISTINE
     Indication: OPTIC GLIOMA
     Dosage: 1.5 MG/M2, CYCLIC
     Route: 065

REACTIONS (3)
  - Haemolytic anaemia [Unknown]
  - Product use in unapproved indication [Unknown]
  - Shock [Unknown]
